FAERS Safety Report 25612681 (Version 1)
Quarter: 2025Q3

REPORT INFORMATION
  Report Type: Spontaneous
  Country: US (occurrence: US)
  Receive Date: 20250728
  Receipt Date: 20250728
  Transmission Date: 20251021
  Serious: Yes (Hospitalization)
  Sender: ROCHE
  Company Number: US-ROCHE-10000337164

PATIENT
  Sex: Female

DRUGS (5)
  1. ACTEMRA [Suspect]
     Active Substance: TOCILIZUMAB
     Indication: Rheumatoid arthritis
     Dosage: STRENGTH: 162 MG/ 0.9 ML
     Route: 058
     Dates: start: 20211201
  2. XARELTO [Concomitant]
     Active Substance: RIVAROXABAN
  3. OMEPRAZOLE [Concomitant]
     Active Substance: OMEPRAZOLE
  4. ZYRTEC [Concomitant]
     Active Substance: CETIRIZINE HYDROCHLORIDE
  5. FLONASE ALG SPR [Concomitant]

REACTIONS (4)
  - Diverticulitis [Unknown]
  - Thrombocytopenia [Unknown]
  - Mesenteric vein thrombosis [Unknown]
  - Hepatic enzyme increased [Unknown]
